FAERS Safety Report 11703997 (Version 1)
Quarter: 2015Q4

REPORT INFORMATION
  Report Type: Spontaneous
  Country: US (occurrence: None)
  Receive Date: 20151105
  Receipt Date: 20151105
  Transmission Date: 20160304
  Serious: Yes (Other)
  Sender: FDA-Public Use
  Company Number: None

PATIENT
  Age: 54 Year
  Weight: 104.33 kg

DRUGS (6)
  1. SINGULAIR [Concomitant]
     Active Substance: MONTELUKAST SODIUM
  2. VITAMIN D [Concomitant]
     Active Substance: CHOLECALCIFEROL
  3. VITAMIN C [Concomitant]
     Active Substance: ASCORBIC ACID
  4. INVOKANA [Suspect]
     Active Substance: CANAGLIFLOZIN
     Indication: TYPE 2 DIABETES MELLITUS
  5. ALBUTERAL [Concomitant]
     Active Substance: ALBUTEROL
  6. MULTIPLE VITAMIN [Concomitant]
     Active Substance: VITAMINS

REACTIONS (6)
  - Nephrolithiasis [None]
  - Dehydration [None]
  - Polydipsia [None]
  - Mental disorder [None]
  - Dizziness [None]
  - Economic problem [None]

NARRATIVE: CASE EVENT DATE: 20150720
